FAERS Safety Report 4335413-X (Version None)
Quarter: 2004Q2

REPORT INFORMATION
  Report Type: 
  Country: None (occurrence: None)
  Receive Date: 20040409
  Receipt Date: 20040213
  Transmission Date: 20050107
  Serious: Yes (Hospitalization)
  Sender: FDA-Public Use
  Company Number: 200410422JP

PATIENT
  Age: 58 Year
  Sex: Male
  Weight: 63 kg

DRUGS (12)
  1. ARAVA [Suspect]
     Indication: RHEUMATOID ARTHRITIS
     Route: 048
     Dates: start: 20031028, end: 20040119
  2. ISONIAZID [Concomitant]
     Indication: TUBERCULOUS PLEURISY
     Route: 048
     Dates: end: 20040119
  3. ESANBUTOL [Concomitant]
     Indication: TUBERCULOUS PLEURISY
     Route: 048
     Dates: end: 20031104
  4. RIMACTANE [Concomitant]
     Indication: TUBERCULOUS PLEURISY
     Route: 048
     Dates: end: 20031104
  5. VOLTAREN [Concomitant]
     Indication: RHEUMATOID ARTHRITIS
     Route: 048
     Dates: end: 20040119
  6. SELBEX [Concomitant]
     Indication: GASTRIC ULCER
     Route: 048
     Dates: end: 20040119
  7. GASTER [Concomitant]
     Indication: GASTRIC ULCER
  8. LASIX [Concomitant]
     Indication: OEDEMA
     Route: 048
     Dates: end: 20040119
  9. TANATRIL ^TANABE^ [Concomitant]
     Indication: HYPERTENSION
     Route: 048
     Dates: end: 20040119
  10. ZYRTEC [Concomitant]
     Indication: PRURITUS
     Route: 048
     Dates: end: 20040119
  11. PREDONINE [Concomitant]
     Indication: RHEUMATOID ARTHRITIS
     Route: 048
     Dates: end: 20040119
  12. SAXIZON [Concomitant]
     Indication: RHEUMATOID ARTHRITIS
     Route: 041
     Dates: start: 20031010, end: 20031110

REACTIONS (7)
  - ALANINE AMINOTRANSFERASE INCREASED [None]
  - ASPARTATE AMINOTRANSFERASE INCREASED [None]
  - BLOOD LACTATE DEHYDROGENASE INCREASED [None]
  - CONDITION AGGRAVATED [None]
  - PANCREATITIS [None]
  - RASH [None]
  - RHEUMATOID ARTHRITIS [None]
